FAERS Safety Report 12126812 (Version 3)
Quarter: 2016Q2

REPORT INFORMATION
  Report Type: Spontaneous
  Country: US (occurrence: US)
  Receive Date: 20160229
  Receipt Date: 20160513
  Transmission Date: 20160815
  Serious: No
  Sender: FDA-Public Use
  Company Number: US-PFIZER INC-2016127616

PATIENT
  Age: 59 Year
  Sex: Female
  Weight: 49.9 kg

DRUGS (4)
  1. ALPRAZOLAM. [Suspect]
     Active Substance: ALPRAZOLAM
     Indication: INSOMNIA
     Dosage: 1 MG, UNK
  2. DIGEST GOLD WITH ATP PRO [Suspect]
     Active Substance: DIETARY SUPPLEMENT
     Indication: GASTROINTESTINAL DISORDER
     Dosage: 2-4, AS NEEDED
     Route: 048
  3. TRIEST/PROGESTERONE/TESTOSTERONE [Concomitant]
     Active Substance: ESTRADIOL\ESTRIOL\ESTRONE\PROGESTERONE\TESTOSTERONE
     Indication: HORMONE REPLACEMENT THERAPY
     Dosage: 1 DF, 2X/DAY (TRIEST: 1.5MG/PROGESTERONE: 50MG)
  4. ZYRTEC [Concomitant]
     Active Substance: CETIRIZINE HYDROCHLORIDE
     Dosage: 10 MG, 1X/DAY

REACTIONS (2)
  - Product substitution issue [None]
  - Drug ineffective for unapproved indication [Unknown]
